FAERS Safety Report 9146955 (Version 1)
Quarter: 2013Q1

REPORT INFORMATION
  Report Type: Spontaneous
  Country: ES (occurrence: ES)
  Receive Date: 20130307
  Receipt Date: 20130307
  Transmission Date: 20140127
  Serious: Yes (Hospitalization)
  Sender: FDA-Public Use
  Company Number: ES-ABBOTT-13P-144-1057237-00

PATIENT
  Age: 14 Year
  Sex: Male

DRUGS (8)
  1. ADALIMUMAB [Suspect]
     Indication: CROHN^S DISEASE
  2. ADALIMUMAB [Suspect]
     Indication: ABSCESS
  3. TEICOPLANIN [Suspect]
     Indication: CROHN^S DISEASE
  4. TEICOPLANIN [Suspect]
     Indication: ABSCESS
  5. MEROPENEM [Suspect]
     Indication: CROHN^S DISEASE
  6. MEROPENEM [Suspect]
     Indication: ABSCESS
  7. METRONIDAZOLE [Suspect]
     Indication: CROHN^S DISEASE
  8. METRONIDAZOLE [Suspect]
     Indication: ABSCESS

REACTIONS (1)
  - Acute febrile neutrophilic dermatosis [Recovering/Resolving]
